FAERS Safety Report 25732494 (Version 1)
Quarter: 2025Q3

REPORT INFORMATION
  Report Type: Spontaneous
  Country: EU (occurrence: EU)
  Receive Date: 20250827
  Receipt Date: 20250827
  Transmission Date: 20251021
  Serious: Yes (Other)
  Sender: PURDUE
  Company Number: EU-AUROBINDO-AUR-APL-2025-037398

PATIENT
  Sex: Male

DRUGS (5)
  1. OXYCODONE HYDROCHLORIDE [Suspect]
     Active Substance: OXYCODONE HYDROCHLORIDE
     Indication: Cystitis interstitial
     Route: 065
  2. OXYCODONE HYDROCHLORIDE [Suspect]
     Active Substance: OXYCODONE HYDROCHLORIDE
     Indication: Cystitis interstitial
     Route: 048
     Dates: start: 2018
  3. FENTANYL [Suspect]
     Active Substance: FENTANYL
     Indication: Cystitis interstitial
     Route: 002
  4. FENTANYL [Suspect]
     Active Substance: FENTANYL
     Indication: Cystitis interstitial
     Route: 002
     Dates: start: 2023
  5. FENTANYL [Suspect]
     Active Substance: FENTANYL
     Indication: Cystitis interstitial
     Route: 002
     Dates: start: 2020

REACTIONS (4)
  - Withdrawal syndrome [Not Recovered/Not Resolved]
  - Drug dependence [Not Recovered/Not Resolved]
  - Drug tolerance [Not Recovered/Not Resolved]
  - Intentional product use issue [Unknown]

NARRATIVE: CASE EVENT DATE: 20180101
